FAERS Safety Report 7204044-6 (Version None)
Quarter: 2010Q4

REPORT INFORMATION
  Report Type: 
  Country: None (occurrence: None)
  Receive Date: 20101220
  Receipt Date: 20101202
  Transmission Date: 20110411
  Serious: Yes (Congenital Anomaly)
  Sender: FDA-Public Use
  Company Number: BVT-000684

PATIENT
  Sex: Female
  Weight: 0.615 kg

DRUGS (1)
  1. KINERET [Suspect]
     Dosage: 100 MG

REACTIONS (4)
  - ABORTION INDUCED [None]
  - BRAIN MALFORMATION [None]
  - CONGENITAL CENTRAL NERVOUS SYSTEM ANOMALY [None]
  - DRUG EXPOSURE DURING PREGNANCY [None]
